FAERS Safety Report 6125669-5 (Version None)
Quarter: 2009Q1

REPORT INFORMATION
  Report Type: 
  Country: None (occurrence: None)
  Receive Date: 20090320
  Receipt Date: 20090311
  Transmission Date: 20090719
  Serious: Yes (Hospitalization)
  Sender: FDA-Public Use
  Company Number: FR-ASTRAZENECA-2009CG00514

PATIENT
  Age: 19248 Day
  Sex: Female

DRUGS (5)
  1. XYLOCAINE WITH NAPHAZOLINE [Suspect]
     Indication: ENDOSCOPY
     Route: 045
     Dates: start: 20080519
  2. SINGULAIR [Concomitant]
  3. AERIUS [Concomitant]
  4. INIPOMP [Concomitant]
  5. IXPRIM [Concomitant]

REACTIONS (5)
  - HEADACHE [None]
  - HYPERTENSION [None]
  - MALAISE [None]
  - TACHYCARDIA [None]
  - TETANY [None]
